FAERS Safety Report 13707911 (Version 1)
Quarter: 2017Q2

REPORT INFORMATION
  Report Type: Spontaneous
  Country: US (occurrence: US)
  Receive Date: 20170630
  Receipt Date: 20170630
  Transmission Date: 20170830
  Serious: Yes (Other)
  Sender: FDA-Public Use
  Company Number: US-BAYER-2017-124458

PATIENT
  Age: 78 Year
  Sex: Female

DRUGS (3)
  1. LEVOTHYROXINE. [Concomitant]
     Active Substance: LEVOTHYROXINE
  2. CLARITIN [Suspect]
     Active Substance: LORATADINE
     Indication: VIRAL UPPER RESPIRATORY TRACT INFECTION
  3. CLARITIN [Suspect]
     Active Substance: LORATADINE
     Indication: HYPERSENSITIVITY
     Dosage: 10 MG ONCE EVERY 24 HOURS
     Route: 048
     Dates: start: 20170626, end: 20170626

REACTIONS (4)
  - Urinary retention [Recovered/Resolved]
  - Nasal congestion [Recovered/Resolved]
  - Expired product administered [Unknown]
  - Nasal dryness [Recovered/Resolved]

NARRATIVE: CASE EVENT DATE: 20170626
